FAERS Safety Report 18291944 (Version 1)
Quarter: 2020Q3

REPORT INFORMATION
  Report Type: Spontaneous
  Country: US (occurrence: US)
  Receive Date: 20200922
  Receipt Date: 20200922
  Transmission Date: 20201103
  Serious: No
  Sender: FDA-Public Use
  Company Number: US-ELI_LILLY_AND_COMPANY-US202009006836

PATIENT
  Sex: Female

DRUGS (9)
  1. HUMULIN N [Suspect]
     Active Substance: INSULIN HUMAN
     Dosage: 14 U, UNKNOWN
     Route: 065
     Dates: start: 202009
  2. HUMULIN N [Suspect]
     Active Substance: INSULIN HUMAN
     Dosage: 14 U, UNKNOWN
     Route: 065
     Dates: start: 202009
  3. HUMALOG [Suspect]
     Active Substance: INSULIN LISPRO
     Indication: CYSTIC FIBROSIS RELATED DIABETES
     Dosage: UNK UNK, PRN
     Route: 065
     Dates: start: 201708
  4. HUMULIN N [Suspect]
     Active Substance: INSULIN HUMAN
     Dosage: 14 U, UNKNOWN
     Route: 065
     Dates: start: 202009
  5. HUMULIN N [Suspect]
     Active Substance: INSULIN HUMAN
     Dosage: 14 U, UNKNOWN
     Route: 065
     Dates: start: 202009
  6. HUMULIN N [Suspect]
     Active Substance: INSULIN HUMAN
     Indication: CYSTIC FIBROSIS RELATED DIABETES
     Dosage: 13 U, UNKNOWN
     Route: 065
     Dates: start: 2020
  7. HUMULIN N [Suspect]
     Active Substance: INSULIN HUMAN
     Indication: CYSTIC FIBROSIS RELATED DIABETES
     Dosage: 13 U, UNKNOWN
     Route: 065
     Dates: start: 2020
  8. HUMULIN N [Suspect]
     Active Substance: INSULIN HUMAN
     Dosage: 13 U, UNKNOWN
     Route: 065
     Dates: start: 2020
  9. HUMULIN N [Suspect]
     Active Substance: INSULIN HUMAN
     Dosage: 13 U, UNKNOWN
     Route: 065
     Dates: start: 2020

REACTIONS (1)
  - Diabetes mellitus inadequate control [Unknown]
